FAERS Safety Report 14554390 (Version 1)
Quarter: 2018Q1

REPORT INFORMATION
  Report Type: Spontaneous
  Country: US (occurrence: US)
  Receive Date: 20180217
  Receipt Date: 20180217
  Transmission Date: 20180509
  Serious: Yes (Other)
  Sender: FDA-Public Use
  Company Number: None

PATIENT
  Age: 39 Year
  Sex: Female
  Weight: 52.2 kg

DRUGS (3)
  1. LUNESTA [Concomitant]
     Active Substance: ESZOPICLONE
  2. LYRICA [Suspect]
     Active Substance: PREGABALIN
     Indication: PAIN
     Dosage: ?          QUANTITY:90 CAPSULE(S);?
     Route: 048
     Dates: start: 20171114, end: 20180204
  3. LYRICA [Suspect]
     Active Substance: PREGABALIN
     Indication: HYPOAESTHESIA
     Dosage: ?          QUANTITY:90 CAPSULE(S);?
     Route: 048
     Dates: start: 20171114, end: 20180204

REACTIONS (9)
  - Insomnia [None]
  - Eye movement disorder [None]
  - Protein urine absent [None]
  - Tremor [None]
  - Feeling hot [None]
  - Muscle spasms [None]
  - Protein urine present [None]
  - Blepharospasm [None]
  - Palpitations [None]

NARRATIVE: CASE EVENT DATE: 20180204
